FAERS Safety Report 6338042-1 (Version None)
Quarter: 2009Q3

REPORT INFORMATION
  Report Type: 
  Country: None (occurrence: None)
  Receive Date: 20090902
  Receipt Date: 20090819
  Transmission Date: 20100115
  Serious: Yes (Other)
  Sender: FDA-Public Use
  Company Number: GB-MYLANLABS-2009S1014880

PATIENT
  Age: 74 Year
  Sex: Male

DRUGS (3)
  1. ATENOLOL [Suspect]
     Indication: DRUG USE FOR UNKNOWN INDICATION
  2. BENDROFLUAZIDE [Suspect]
     Indication: DRUG USE FOR UNKNOWN INDICATION
  3. METHOTREXATE [Suspect]
     Indication: RHEUMATOID ARTHRITIS

REACTIONS (1)
  - MOUTH ULCERATION [None]
